FAERS Safety Report 7106573-2 (Version None)
Quarter: 2010Q4

REPORT INFORMATION
  Report Type: 
  Country: None (occurrence: None)
  Receive Date: 20101116
  Receipt Date: 20101108
  Transmission Date: 20110411
  Serious: Yes (Hospitalization, Other)
  Sender: FDA-Public Use
  Company Number: DE-ABBOTT-10P-062-0682014-00

PATIENT
  Sex: Female

DRUGS (2)
  1. HUMIRA [Suspect]
     Indication: RHEUMATOID ARTHRITIS
     Route: 058
     Dates: start: 20100122
  2. UNKNOWN DRUG AGAINST COLLAGEN DISEASES [Concomitant]
     Indication: COLLAGEN DISORDER

REACTIONS (3)
  - CATHETER SITE INFECTION [None]
  - NECROSIS [None]
  - UPPER LIMB FRACTURE [None]
